FAERS Safety Report 7790477-6 (Version None)
Quarter: 2011Q3

REPORT INFORMATION
  Report Type: 
  Country: None (occurrence: None)
  Receive Date: 20110930
  Receipt Date: 20110917
  Transmission Date: 20111222
  Serious: Yes (Hospitalization)
  Sender: FDA-Public Use
  Company Number: PHHY2011CN86103

PATIENT
  Age: 80 Year
  Sex: Female

DRUGS (6)
  1. LISINOPRIL [Concomitant]
     Indication: HYPERTENSION
  2. INSULIN [Concomitant]
     Indication: DIABETES MELLITUS
  3. FUFANG XIANZHULI [Concomitant]
     Indication: PYREXIA
     Route: 048
  4. FUFANG XIANZHULI [Concomitant]
     Indication: INCREASED UPPER AIRWAY SECRETION
  5. EXJADE [Suspect]
     Indication: MYELODYSPLASTIC SYNDROME
     Dosage: 10 MG/KG, UNK
     Route: 048
     Dates: start: 20110801
  6. AMLODIPINE [Concomitant]
     Indication: HYPERTENSION

REACTIONS (6)
  - HAEMOGLOBIN DECREASED [None]
  - HAEMATURIA [None]
  - FAECES DISCOLOURED [None]
  - GASTROINTESTINAL HAEMORRHAGE [None]
  - HAEMATOCHEZIA [None]
  - URINARY TRACT INFECTION [None]
